FAERS Safety Report 9519160 (Version 1)
Quarter: 2013Q1

REPORT INFORMATION
  Report Type: Spontaneous
  Country: US (occurrence: None)
  Receive Date: 20130305
  Receipt Date: 20130305
  Transmission Date: 20140127
  Serious: Yes (Hospitalization)
  Sender: FDA-Public Use
  Company Number: 163-21880-12010654

PATIENT
  Age: 66 Year
  Sex: Male

DRUGS (4)
  1. REVLIMID [Suspect]
     Indication: PLASMA CELL MYELOMA
     Dosage: 5 MG, DAILY X 1-21 DAYS/OFF 7, PO
     Route: 048
     Dates: start: 20111208
  2. VITAMINS ( VITAMINS) (UNKNOWN) [Concomitant]
  3. VITAMIN D ( ERGOCALCIFEROL) (UNKNOWN) [Concomitant]
  4. ANTIBIOTICS ( ANTIBIOTICS) ( UNKNOWN) [Concomitant]

REACTIONS (2)
  - Pleural effusion [None]
  - Pulmonary oedema [None]
